FAERS Safety Report 7343301-X (Version None)
Quarter: 2011Q1

REPORT INFORMATION
  Report Type: 
  Country: None (occurrence: None)
  Receive Date: 20110308
  Receipt Date: 20110308
  Transmission Date: 20110831
  Serious: No
  Sender: FDA-Public Use
  Company Number: None

PATIENT
  Age: 33 Year
  Sex: Male
  Weight: 63.5036 kg

DRUGS (1)
  1. VICODIN [Suspect]
     Dosage: 1-2 EVERY 6 HOURS PO
     Route: 048
     Dates: start: 20110212, end: 20110213

REACTIONS (4)
  - PRODUCT QUALITY ISSUE [None]
  - HEADACHE [None]
  - NERVOUS SYSTEM DISORDER [None]
  - PAIN [None]
